FAERS Safety Report 22524795 (Version 1)
Quarter: 2023Q2

REPORT INFORMATION
  Report Type: Spontaneous
  Country: US (occurrence: US)
  Receive Date: 20230606
  Receipt Date: 20230606
  Transmission Date: 20230722
  Serious: No
  Sender: FDA-Public Use
  Company Number: US-SA-SAC20230602000447

PATIENT
  Sex: Male

DRUGS (2)
  1. DUPIXENT [Suspect]
     Active Substance: DUPILUMAB
     Indication: Nasal polyps
     Dosage: 2 DF, 1X; RECEIVED 2 INJECTIONS AT HER DOCTOR^S OFFICE FOR HER INITIAL DOSE INSTEAD OF 1 INJECTION
     Route: 058
  2. DUPIXENT [Suspect]
     Active Substance: DUPILUMAB
     Dosage: 300 MG, QOW
     Route: 058

REACTIONS (5)
  - Scab [Unknown]
  - Sensitive skin [Unknown]
  - Urticaria [Unknown]
  - Pruritus [Unknown]
  - Extra dose administered [Unknown]
